FAERS Safety Report 6866205-5 (Version None)
Quarter: 2010Q2

REPORT INFORMATION
  Report Type: 
  Country: None (occurrence: None)
  Receive Date: 20100610
  Receipt Date: 20100312
  Transmission Date: 20101027
  Serious: Yes (Other)
  Sender: FDA-Public Use
  Company Number: 2010SP015691

PATIENT
  Sex: Female

DRUGS (5)
  1. SAPHRIS [Suspect]
     Indication: DRUG USE FOR UNKNOWN INDICATION
     Dosage: 5 MG;BID;SL
     Route: 060
     Dates: start: 20100209, end: 20100222
  2. KLONOPIN [Concomitant]
  3. NEURONTIN [Concomitant]
  4. EFFEXOR XR [Concomitant]
  5. DEPAKOTE [Concomitant]

REACTIONS (3)
  - AKATHISIA [None]
  - ANGER [None]
  - INSOMNIA [None]
